FAERS Safety Report 13776275 (Version 2)
Quarter: 2017Q4

REPORT INFORMATION
  Report Type: Spontaneous
  Country: US (occurrence: US)
  Receive Date: 20170721
  Receipt Date: 20171020
  Transmission Date: 20180320
  Serious: Yes (Other)
  Sender: FDA-Public Use
  Company Number: US-PFIZER INC-2017293658

PATIENT
  Age: 70 Year
  Sex: Female
  Weight: 109 kg

DRUGS (5)
  1. CELEBREX [Suspect]
     Active Substance: CELECOXIB
     Dosage: 400 MG, 1X/DAY [TWO 200 MG CAPSULES]
  2. CELEBREX [Suspect]
     Active Substance: CELECOXIB
     Dosage: 400 MG, 1X/DAY
  3. SIMVASTATIN. [Concomitant]
     Active Substance: SIMVASTATIN
     Indication: BLOOD CHOLESTEROL INCREASED
     Dosage: 40 MG, 1X/DAY
  4. CELEBREX [Suspect]
     Active Substance: CELECOXIB
     Indication: ARTHRITIS
     Dosage: 400 MG, DAILY
     Route: 048
  5. LISINOPRIL. [Concomitant]
     Active Substance: LISINOPRIL
     Indication: HYPERTENSION
     Dosage: 20 MG, 1X/DAY

REACTIONS (1)
  - No adverse event [Recovered/Resolved]
